FAERS Safety Report 20472818 (Version 1)
Quarter: 2022Q1

REPORT INFORMATION
  Report Type: Report from Study
  Country: US (occurrence: US)
  Receive Date: 20220215
  Receipt Date: 20220215
  Transmission Date: 20220423
  Serious: Yes (Other)
  Sender: FDA-Public Use
  Company Number: US-ABBVIE-22K-163-4276546-00

PATIENT
  Sex: Male

DRUGS (1)
  1. HUMIRA [Suspect]
     Active Substance: ADALIMUMAB
     Indication: Crohn^s disease
     Dosage: CITRATE FREE
     Route: 058

REACTIONS (3)
  - Internal haemorrhage [Not Recovered/Not Resolved]
  - Asthenia [Not Recovered/Not Resolved]
  - Crohn^s disease [Not Recovered/Not Resolved]
